FAERS Safety Report 4832910-5 (Version None)
Quarter: 2005Q4

REPORT INFORMATION
  Report Type: 
  Country: None (occurrence: None)
  Receive Date: 20051121
  Receipt Date: 20050705
  Transmission Date: 20060501
  Serious: Yes (Death, Hospitalization, Other)
  Sender: FDA-Public Use
  Company Number: US-MERCK-0507USA00427

PATIENT
  Age: 54 Year
  Sex: Male

DRUGS (3)
  1. FOSAMAX [Suspect]
     Indication: BONE DENSITY DECREASED
     Route: 048
     Dates: start: 19950101, end: 20050501
  2. PREDNISONE [Concomitant]
     Route: 065
  3. [THERAPY UNSPECIFIED] [Concomitant]
     Route: 065

REACTIONS (4)
  - GASTRIC CANCER [None]
  - OESOPHAGEAL CARCINOMA [None]
  - OESOPHAGEAL ULCER [None]
  - OSTEONECROSIS [None]
